FAERS Safety Report 4423330-6 (Version None)
Quarter: 2004Q3

REPORT INFORMATION
  Report Type: 
  Country: None (occurrence: None)
  Receive Date: 20040805
  Receipt Date: 20040726
  Transmission Date: 20050211
  Serious: Yes (Hospitalization, Disabling, Other)
  Sender: FDA-Public Use
  Company Number: 2003-09-2724

PATIENT
  Age: 44 Year
  Sex: Female
  Weight: 68.0396 kg

DRUGS (31)
  1. PEG-INTRON [Suspect]
     Indication: HEPATITIS C
     Dosage: 120 MU QWK SUBCUTANEOUS
     Route: 058
     Dates: start: 20011102, end: 20020312
  2. REBETOL [Suspect]
     Indication: HEPATITIS C
     Dosage: 1000 MG QD ORAL
     Route: 048
     Dates: start: 20011102, end: 20020312
  3. PROPRANOLOL [Concomitant]
  4. PHENERGAN HCL [Concomitant]
  5. NEXIUM [Concomitant]
  6. TRAZODONE [Concomitant]
  7. FOLIC ACID [Concomitant]
  8. LORAZEPAM [Concomitant]
  9. UNIVASC [Concomitant]
  10. TRAMADOL HCL [Concomitant]
  11. PRILOSEC [Concomitant]
  12. ZOFRAN [Concomitant]
  13. ULTRAM [Concomitant]
  14. CELEXA [Concomitant]
  15. CYCLOBENZAPRINE HCL [Concomitant]
  16. CLARITIN [Concomitant]
  17. XANAX [Concomitant]
  18. KLONOPIN [Concomitant]
  19. DARVOCET-N 100 [Concomitant]
  20. ZOLOFT [Concomitant]
  21. ASPIRIN [Concomitant]
  22. SOMA [Concomitant]
  23. FLEXERIL [Concomitant]
  24. RESTORIL [Concomitant]
  25. MORPHINE [Concomitant]
  26. METHADONE HCL [Concomitant]
  27. TOPOMAX (TOPIRAMATE) [Concomitant]
  28. PROTONIX [Concomitant]
  29. MILK THISTLE FRUIT [Concomitant]
  30. NEURONTIN [Concomitant]
  31. DESYREL [Concomitant]

REACTIONS (65)
  - ANXIETY [None]
  - APLASTIC ANAEMIA [None]
  - ARTHRALGIA [None]
  - ASTHENIA [None]
  - ATAXIA [None]
  - BILIARY DYSKINESIA [None]
  - CAROTID ARTERY STENOSIS [None]
  - CARPAL TUNNEL SYNDROME [None]
  - CATARACT [None]
  - CEREBROVASCULAR ACCIDENT [None]
  - CHOLECYSTITIS CHRONIC [None]
  - CHOLELITHIASIS [None]
  - CLONUS [None]
  - COLITIS [None]
  - CONSTIPATION [None]
  - DEHYDRATION [None]
  - DEMYELINATION [None]
  - DIARRHOEA [None]
  - DRUG TOXICITY [None]
  - DYSPHONIA [None]
  - ELECTROCARDIOGRAM ST-T CHANGE [None]
  - ENCEPHALOPATHY [None]
  - FATIGUE [None]
  - FEELING HOT AND COLD [None]
  - GAIT SPASTIC [None]
  - GASTROENTERITIS [None]
  - GLAUCOMA [None]
  - HAEMANGIOMA OF LIVER [None]
  - HAEMATOCHEZIA [None]
  - HEADACHE [None]
  - HEPATIC STEATOSIS [None]
  - HOT FLUSH [None]
  - HYPOKALAEMIA [None]
  - INFLUENZA [None]
  - INTERVERTEBRAL DISC DISORDER [None]
  - MENINGITIS ASEPTIC [None]
  - MENINGITIS CHEMICAL [None]
  - MENTAL IMPAIRMENT [None]
  - METRORRHAGIA [None]
  - MIGRAINE WITHOUT AURA [None]
  - MITRAL VALVE DISEASE [None]
  - MULTIPLE SCLEROSIS [None]
  - MUSCLE CRAMP [None]
  - MYALGIA [None]
  - MYOFASCIAL PAIN SYNDROME [None]
  - NAUSEA [None]
  - NERVOUSNESS [None]
  - NEURITIS [None]
  - NEUROPATHY [None]
  - OSTEOPENIA [None]
  - PAIN [None]
  - PAIN IN EXTREMITY [None]
  - PHOTOPHOBIA [None]
  - PNEUMONIA FUNGAL [None]
  - PRECEREBRAL ARTERY OCCLUSION [None]
  - RADICULOPATHY [None]
  - RESTLESS LEGS SYNDROME [None]
  - SPINAL OSTEOARTHRITIS [None]
  - TENSION [None]
  - TRANSIENT ISCHAEMIC ATTACK [None]
  - TREMOR [None]
  - UPPER RESPIRATORY TRACT INFECTION [None]
  - VASCULITIS [None]
  - VOMITING [None]
  - WEIGHT DECREASED [None]
